FAERS Safety Report 5370399-0 (Version None)
Quarter: 2007Q2

REPORT INFORMATION
  Report Type: 
  Country: None (occurrence: None)
  Receive Date: 20070625
  Receipt Date: 20070625
  Transmission Date: 20071010
  Serious: Yes (Other)
  Sender: FDA-Public Use
  Company Number: None

PATIENT
  Sex: Male
  Weight: 63.5036 kg

DRUGS (1)
  1. PROPOFOL [Suspect]
     Indication: JOINT DISLOCATION
     Dosage: 150 MG X 1 IV
     Route: 042
     Dates: start: 20070623

REACTIONS (2)
  - CHILLS [None]
  - TACHYCARDIA [None]
